FAERS Safety Report 20900015 (Version 1)
Quarter: 2022Q2

REPORT INFORMATION
  Report Type: Spontaneous
  Country: US (occurrence: None)
  Receive Date: 20220531
  Receipt Date: 20220531
  Transmission Date: 20220721
  Serious: Yes (Hospitalization)
  Sender: FDA-Public Use
  Company Number: None

PATIENT
  Sex: Female

DRUGS (10)
  1. HUMIRA [Suspect]
     Active Substance: ADALIMUMAB
     Indication: Rheumatoid arthritis
     Dosage: 40MG/0.8ML??INJECT 0.8 MLS (40 MG TOTAL) UNDER THE SKIN (SUBCUTANEOUS INJECTION) ONCE A WEEK.? ?
     Route: 058
     Dates: start: 20181228
  2. HUMIRA [Suspect]
     Active Substance: ADALIMUMAB
     Dosage: FREQUENCY : WEEKLY;?
     Route: 058
  3. DICLOFENAC [Concomitant]
     Active Substance: DICLOFENAC
  4. HYDROXYCHLOR [Concomitant]
  5. KENALOG-40 [Concomitant]
     Active Substance: TRIAMCINOLONE ACETONIDE
  6. METHENAM HIP [Concomitant]
  7. OXYBUTYNIN [Concomitant]
     Active Substance: OXYBUTYNIN
  8. PANTOPRAZOLE [Concomitant]
     Active Substance: PANTOPRAZOLE
  9. PREDNISONE [Concomitant]
     Active Substance: PREDNISONE
  10. SIMVASTATIN [Concomitant]
     Active Substance: SIMVASTATIN

REACTIONS (2)
  - Condition aggravated [None]
  - Pain [None]
